FAERS Safety Report 6208137-1 (Version None)
Quarter: 2009Q2

REPORT INFORMATION
  Report Type: 
  Country: None (occurrence: None)
  Receive Date: 20090529
  Receipt Date: 20090519
  Transmission Date: 20091009
  Serious: Yes (Death)
  Sender: FDA-Public Use
  Company Number: ES-ROCHE-633839

PATIENT
  Age: 38 Year
  Sex: Male

DRUGS (2)
  1. PEGASYS [Suspect]
     Indication: HEPATITIS C
     Dosage: START DATE REPORTED: 2009
     Route: 065
  2. COPEGUS [Suspect]
     Indication: HEPATITIS C
     Dosage: START DATE REPORTED: 2009
     Route: 065

REACTIONS (1)
  - BONE MARROW FAILURE [None]
